FAERS Safety Report 7388168-9 (Version None)
Quarter: 2011Q1

REPORT INFORMATION
  Report Type: 
  Country: None (occurrence: None)
  Receive Date: 20110324
  Receipt Date: 20110307
  Transmission Date: 20110831
  Serious: Yes (Other)
  Sender: FDA-Public Use
  Company Number: 013535

PATIENT
  Sex: Female
  Weight: 65 kg

DRUGS (5)
  1. MACUGEN [Suspect]
     Indication: MACULAR DEGENERATION
     Dosage: 0.3MG, IN THE RIGHT EYE
     Dates: start: 20080129, end: 20080129
  2. MACUGEN [Suspect]
     Indication: MACULAR DEGENERATION
     Dosage: 0.3MG, IN THE RIGHT EYE
     Dates: start: 20090305, end: 20090305
  3. MACUGEN [Suspect]
     Indication: MACULAR DEGENERATION
     Dosage: 0.3MG, IN THE RIGHT EYE
     Dates: start: 20090122, end: 20090122
  4. MACUGEN [Suspect]
     Indication: MACULAR DEGENERATION
     Dosage: 0.3MG, IN THE RIGHT EYE
     Dates: start: 20080411
  5. MACUGEN [Suspect]
     Indication: MACULAR DEGENERATION
     Dosage: 0.3MG, IN THE RIGHT EYE
     Dates: start: 20071218

REACTIONS (1)
  - VISUAL ACUITY REDUCED [None]
